FAERS Safety Report 6471755-X (Version None)
Quarter: 2009Q4

REPORT INFORMATION
  Report Type: 
  Country: None (occurrence: None)
  Receive Date: 20091203
  Receipt Date: 20080421
  Transmission Date: 20100525
  Serious: Yes (Other)
  Sender: FDA-Public Use
  Company Number: US-ELI_LILLY_AND_COMPANY-US200803005505

PATIENT
  Age: 47 Year
  Sex: Female
  Weight: 54.422 kg

DRUGS (1)
  1. PROZAC [Suspect]
     Indication: DEPRESSION
     Dosage: 60 MG, UNK
     Dates: start: 19900101, end: 20080401

REACTIONS (2)
  - BREAST CANCER STAGE II [None]
  - DRUG INTERACTION [None]
